FAERS Safety Report 5233939-8 (Version None)
Quarter: 2007Q1

REPORT INFORMATION
  Report Type: 
  Country: None (occurrence: None)
  Receive Date: 20070208
  Receipt Date: 20070201
  Transmission Date: 20070707
  Serious: Yes (Hospitalization, Other)
  Sender: FDA-Public Use
  Company Number: 2006AP05875

PATIENT
  Age: 23178 Day
  Sex: Female
  Weight: 84 kg

DRUGS (8)
  1. IRESSA [Suspect]
     Indication: CHRONIC OBSTRUCTIVE PULMONARY DISEASE
     Dosage: PATIENT COMPLETED COURSE OF STUDY THERAPY (4 WEEKS)
     Route: 048
     Dates: start: 20061107, end: 20061204
  2. BRICANYL [Concomitant]
     Indication: CHRONIC OBSTRUCTIVE PULMONARY DISEASE
     Dosage: COMPLETED 4 WEEK STUDY PERIOD
     Route: 055
     Dates: start: 20061108, end: 20061204
  3. DORMICUM [Concomitant]
     Indication: BRONCHOSCOPY
     Route: 048
     Dates: start: 20061107, end: 20061107
  4. DORMICUM [Concomitant]
     Route: 042
     Dates: start: 20061107, end: 20061107
  5. VENTOLIN [Concomitant]
     Indication: BRONCHOSCOPY
     Route: 055
     Dates: start: 20061107, end: 20061107
  6. ROBINUL [Concomitant]
     Indication: BRONCHOSCOPY
     Route: 042
     Dates: start: 20061107, end: 20061107
  7. RAPIFEN [Concomitant]
     Indication: BRONCHOSCOPY
     Route: 042
     Dates: start: 20061107, end: 20061107
  8. LIDOCAINE [Concomitant]
     Indication: BRONCHOSCOPY
     Route: 055
     Dates: start: 20061107, end: 20061107

REACTIONS (2)
  - ATRIAL FIBRILLATION [None]
  - PNEUMONIA [None]
